FAERS Safety Report 6147345-5 (Version None)
Quarter: 2009Q2

REPORT INFORMATION
  Report Type: 
  Country: None (occurrence: None)
  Receive Date: 20090408
  Receipt Date: 20090330
  Transmission Date: 20091009
  Serious: Yes (Disabling)
  Sender: FDA-Public Use
  Company Number: PHEH2009US02420

PATIENT
  Sex: Female

DRUGS (4)
  1. RECLAST [Suspect]
     Indication: OSTEOPOROSIS
     Dosage: UNK
     Dates: start: 20090212, end: 20090212
  2. OXYCONTIN [Concomitant]
     Dosage: 20 MG, QID
     Dates: start: 20070701
  3. ATENOLOL [Concomitant]
     Indication: HYPERTENSION
     Dosage: 50 MG, BID
     Dates: start: 20070701, end: 20090323
  4. SOMA [Concomitant]
     Dosage: 350 MG, TID

REACTIONS (6)
  - ARTHRALGIA [None]
  - BONE PAIN [None]
  - DIARRHOEA [None]
  - FEELING ABNORMAL [None]
  - MYALGIA [None]
  - PYREXIA [None]
